FAERS Safety Report 10029288 (Version 1)
Quarter: 2014Q1

REPORT INFORMATION
  Report Type: Report from Study
  Country: US (occurrence: US)
  Receive Date: 20140321
  Receipt Date: 20140321
  Transmission Date: 20141002
  Serious: Yes (Other)
  Sender: FDA-Public Use
  Company Number: PHEH2014US005307

PATIENT
  Sex: Male

DRUGS (3)
  1. DIOVAN HCT [Suspect]
     Dosage: UNK UKN, UNK
  2. NEXIUM [Concomitant]
     Dosage: UNK UKN, UNK
  3. LORTAB [Concomitant]
     Dosage: UNK UKN, UNK

REACTIONS (1)
  - Aortic aneurysm [Unknown]
